FAERS Safety Report 4421279-6 (Version None)
Quarter: 2004Q3

REPORT INFORMATION
  Report Type: 
  Country: None (occurrence: None)
  Receive Date: 20040804
  Receipt Date: 20040728
  Transmission Date: 20050211
  Serious: Yes (Death)
  Sender: FDA-Public Use
  Company Number: S04-UKI-02580-01

PATIENT
  Age: 59 Year
  Sex: Male

DRUGS (7)
  1. CITALOPRAM HYDROBROMIDE [Suspect]
     Indication: DEPRESSION
     Dosage: 20 MG QD PO
     Route: 048
     Dates: start: 20031024
  2. CITALOPRAM HYDROBROMIDE [Suspect]
     Indication: DEPRESSION
     Dosage: 40 M QD PO
     Route: 048
     Dates: end: 20031023
  3. DEPAKOTE [Concomitant]
  4. ATORVASTATIN [Concomitant]
  5. ATENOLOL [Concomitant]
  6. ALLOPURINOL [Concomitant]
  7. PROCYCLIDINE HYDROCHLORIDE 2MG TAB [Concomitant]

REACTIONS (5)
  - CHOKING [None]
  - EATING DISORDER [None]
  - HYPOMANIA [None]
  - INJURY ASPHYXIATION [None]
  - MANIA [None]
